FAERS Safety Report 4789449-5 (Version None)
Quarter: 2005Q3

REPORT INFORMATION
  Report Type: 
  Country: None (occurrence: None)
  Receive Date: 20050909
  Receipt Date: 20041102
  Transmission Date: 20060218
  Serious: Yes (Life-Threatening)
  Sender: FDA-Public Use
  Company Number: 04H-163-0279583-00

PATIENT

DRUGS (3)
  1. LEVOPHED [Suspect]
     Dates: start: 20041008
  2. NEOSYNEPHRINE [Concomitant]
  3. CARDIZEN [Concomitant]

REACTIONS (2)
  - ADVERSE DRUG REACTION [None]
  - DRUG ADMINISTRATION ERROR [None]
